FAERS Safety Report 9349447 (Version 2)
Quarter: 2014Q2

REPORT INFORMATION
  Report Type: Spontaneous
  Country: FR (occurrence: None)
  Receive Date: 20130611
  Receipt Date: 20140422
  Transmission Date: 20141212
  Serious: Yes (Hospitalization)
  Sender: FDA-Public Use
  Company Number: 2013000124

PATIENT
  Age: 79 Year
  Sex: Male

DRUGS (2)
  1. ACEON [Suspect]
     Indication: HYPERTENSION
     Dosage: 1 TABLET, QD, ORAL
     Route: 048
     Dates: start: 20130501
  2. LOVENOX [Suspect]
     Indication: PROPHYLAXIS
     Dates: start: 20130515

REACTIONS (3)
  - Pulmonary embolism [None]
  - Drug ineffective [None]
  - Supraventricular extrasystoles [None]
